FAERS Safety Report 19005577 (Version 3)
Quarter: 2021Q2

REPORT INFORMATION
  Report Type: Spontaneous
  Country: IT (occurrence: IT)
  Receive Date: 20210313
  Receipt Date: 20210511
  Transmission Date: 20210717
  Serious: Yes (Hospitalization)
  Sender: FDA-Public Use
  Company Number: NVSC2020IT060415

PATIENT
  Age: 82 Year
  Sex: Female
  Weight: 95 kg

DRUGS (28)
  1. PERTUZUMAB. [Suspect]
     Active Substance: PERTUZUMAB
     Dosage: 420 MG, TIW (MOST RECENT DOSE PRIOR TO THE EVENT: 10/MAY/2018)
     Route: 042
     Dates: start: 20170428
  2. TRASTUZUMAB. [Suspect]
     Active Substance: TRASTUZUMAB
     Dosage: 600 MG, TIW (MOST RECENT DOSE PRIOR TO THE EVENT:14 FEB 2019)
     Route: 041
     Dates: start: 20181120
  3. IDROCLOROTIAZIDE [Concomitant]
     Active Substance: HYDROCHLOROTHIAZIDE
     Indication: PRODUCT USED FOR UNKNOWN INDICATION
     Dosage: UNK (ONGOING=NOT CHECKED)
     Route: 065
     Dates: end: 20190913
  4. TRASTUZUMAB. [Suspect]
     Active Substance: TRASTUZUMAB
     Indication: BREAST CANCER
     Dosage: 760 MG, TIW (MOST RECENT DOSE PRIOR TO THE EVENT:14 FEB 2019)
     Route: 041
     Dates: start: 20170407, end: 20170407
  5. ALLOPURINOL. [Concomitant]
     Active Substance: ALLOPURINOL
     Indication: PRODUCT USED FOR UNKNOWN INDICATION
     Dosage: UNK
     Route: 065
     Dates: end: 20190913
  6. PREDNISONE. [Concomitant]
     Active Substance: PREDNISONE
     Indication: ASTHENIA
     Dosage: UNK
     Route: 065
     Dates: start: 20190530, end: 20190913
  7. PARACETAMOL [Concomitant]
     Active Substance: ACETAMINOPHEN
     Indication: PRODUCT USED FOR UNKNOWN INDICATION
     Dosage: UNK
     Route: 065
     Dates: start: 20170825, end: 20190913
  8. TRASTUZUMAB. [Suspect]
     Active Substance: TRASTUZUMAB
     Dosage: 564 MG, TIW
     Route: 041
     Dates: start: 20170519, end: 20180510
  9. ENOXAPARIN [Concomitant]
     Active Substance: ENOXAPARIN
     Indication: PRODUCT USED FOR UNKNOWN INDICATION
     Dosage: UNK
     Route: 065
     Dates: start: 20190613, end: 20190913
  10. RANITIDINE. [Concomitant]
     Active Substance: RANITIDINE
     Indication: PRODUCT USED FOR UNKNOWN INDICATION
     Dosage: UNK
     Route: 065
     Dates: start: 20190530, end: 20190913
  11. FEMARA [Suspect]
     Active Substance: LETROZOLE
     Dosage: 2.5 MG, QD
     Route: 048
     Dates: start: 20171207
  12. FEMARA [Suspect]
     Active Substance: LETROZOLE
     Dosage: 2.5 MG, QD
     Route: 048
     Dates: start: 20181109
  13. PERTUZUMAB. [Suspect]
     Active Substance: PERTUZUMAB
     Indication: BREAST CANCER
     Dosage: 840 MG, TIW (MOST RECENT DOSE PRIOR TO EVENT: 28 APR 2017)
     Route: 042
     Dates: start: 20170407, end: 20170407
  14. MORPHINE SULFATE. [Concomitant]
     Active Substance: MORPHINE SULFATE
     Indication: PRODUCT USED FOR UNKNOWN INDICATION
     Dosage: UNK
     Route: 065
     Dates: start: 20190608, end: 20190913
  15. TELMISARTAN. [Concomitant]
     Active Substance: TELMISARTAN
     Indication: PRODUCT USED FOR UNKNOWN INDICATION
     Dosage: UNK (ONGOING=NOT CHECKED)
     Route: 065
     Dates: end: 20190913
  16. TRASTUZUMAB. [Suspect]
     Active Substance: TRASTUZUMAB
     Dosage: 564 MG, TIW
     Route: 041
     Dates: start: 20170428, end: 20170519
  17. DESAMETASONE [Concomitant]
     Active Substance: DEXAMETHASONE
     Indication: PRODUCT USED FOR UNKNOWN INDICATION
     Dosage: UNK
     Route: 065
     Dates: start: 20170407, end: 20190808
  18. ALPRAZOLAM. [Concomitant]
     Active Substance: ALPRAZOLAM
     Indication: PRODUCT USED FOR UNKNOWN INDICATION
     Dosage: UNK
     Route: 065
     Dates: start: 20190530, end: 20190913
  19. NORVASC [Concomitant]
     Active Substance: AMLODIPINE BESYLATE
     Indication: PRODUCT USED FOR UNKNOWN INDICATION
     Dosage: UNK
     Route: 065
     Dates: end: 20190913
  20. TRASTUZUMAB EMTANSINE [Suspect]
     Active Substance: ADO-TRASTUZUMAB EMTANSINE
     Indication: BREAST CANCER
     Dosage: 324 MG, TIW (LAST DOSE 29/AUG/2018)
     Route: 042
     Dates: start: 20180606, end: 20180829
  21. FEMARA [Suspect]
     Active Substance: LETROZOLE
     Indication: BREAST CANCER
     Dosage: 2.5 MG, QD (MOST RECENT DOSE PRIOR TO THE EVENT: 07/DEC/2017, 09/NOV/2018)
     Route: 048
     Dates: start: 20170616
  22. EXEMESTANE. [Suspect]
     Active Substance: EXEMESTANE
     Indication: BREAST CANCER
     Dosage: 25 MG, QD
     Route: 048
     Dates: start: 20171207, end: 20180604
  23. ELLENCE [Suspect]
     Active Substance: EPIRUBICIN HYDROCHLORIDE
     Indication: BREAST CANCER
     Dosage: 48 MG, QW ((MOST RECENT DOSE: 08 AUG 2019)
     Route: 042
     Dates: start: 20190622
  24. TRASTUZUMAB. [Suspect]
     Active Substance: TRASTUZUMAB
     Dosage: 528 MG, TIW (TRASTUZUMAB BIOSIMILAR)
     Route: 041
     Dates: start: 20190307, end: 20190509
  25. TAXOL [Suspect]
     Active Substance: PACLITAXEL
     Indication: BREAST CANCER
     Dosage: 160 MG, QW (LAST DOSE 02/JUN/2017)
     Route: 042
     Dates: start: 20170407, end: 20170602
  26. TRASTUZUMAB. [Suspect]
     Active Substance: TRASTUZUMAB
     Dosage: 760 MG, TIW
     Route: 041
     Dates: start: 20181120
  27. DULOXETINE. [Concomitant]
     Active Substance: DULOXETINE
     Indication: PRODUCT USED FOR UNKNOWN INDICATION
     Dosage: UNK
     Route: 065
     Dates: end: 20190913
  28. OXYCODONE [Concomitant]
     Active Substance: OXYCODONE
     Indication: PRODUCT USED FOR UNKNOWN INDICATION
     Dosage: UNK
     Route: 065
     Dates: start: 20190608, end: 20190913

REACTIONS (1)
  - Pain [Recovered/Resolved]

NARRATIVE: CASE EVENT DATE: 20190902
